FAERS Safety Report 22262018 (Version 1)
Quarter: 2023Q2

REPORT INFORMATION
  Report Type: Spontaneous
  Country: US (occurrence: US)
  Receive Date: 20230428
  Receipt Date: 20230428
  Transmission Date: 20230722
  Serious: No
  Sender: FDA-Public Use
  Company Number: US-CADILA HEALTHCARE LIMITED-US-ZYDUS-087417

PATIENT

DRUGS (4)
  1. AMANTADINE [Suspect]
     Active Substance: AMANTADINE
     Indication: Neuromyopathy
     Dosage: 100 MILLIGRAM
     Route: 048
     Dates: start: 20221231
  2. AMANTADINE [Suspect]
     Active Substance: AMANTADINE
     Indication: Myasthenia gravis
  3. AMANTADINE [Suspect]
     Active Substance: AMANTADINE
     Indication: Product used for unknown indication
  4. ATORVASTATIN [Concomitant]
     Active Substance: ATORVASTATIN
     Indication: Hypercholesterolaemia
     Dosage: , UNK
     Route: 048

REACTIONS (2)
  - Euphoric mood [Not Recovered/Not Resolved]
  - Product use in unapproved indication [Not Recovered/Not Resolved]

NARRATIVE: CASE EVENT DATE: 20221231
